FAERS Safety Report 5311499-0 (Version None)
Quarter: 2007Q2

REPORT INFORMATION
  Report Type: 
  Country: None (occurrence: None)
  Receive Date: 20070430
  Receipt Date: 20070424
  Transmission Date: 20071010
  Serious: Yes (Other)
  Sender: FDA-Public Use
  Company Number: US-GLAXOSMITHKLINE-A0648565A

PATIENT
  Sex: Female

DRUGS (3)
  1. TYKERB [Suspect]
     Indication: BREAST CANCER
     Dosage: 1200MG PER DAY
     Route: 048
     Dates: start: 20070405
  2. ZOMETA [Concomitant]
  3. ABRAXANE [Concomitant]

REACTIONS (2)
  - PLATELET ADHESIVENESS INCREASED [None]
  - PLATELET DISORDER [None]
